FAERS Safety Report 9576780 (Version 1)
Quarter: 2013Q4

REPORT INFORMATION
  Report Type: Spontaneous
  Country: US (occurrence: US)
  Receive Date: 20131001
  Receipt Date: 20131001
  Transmission Date: 20140711
  Serious: No
  Sender: FDA-Public Use
  Company Number: US-AMGEN-USASP2013004581

PATIENT
  Age: 49 Year
  Sex: Female
  Weight: 81.63 kg

DRUGS (14)
  1. ENBREL [Suspect]
     Indication: PRODUCT USED FOR UNKNOWN INDICATION
     Dosage: 50 MG, QWK
     Route: 058
  2. CYMBALTA [Concomitant]
     Dosage: 20 MG, UNK
  3. PROZAC [Concomitant]
     Dosage: 10 MG, UNK
  4. KLONOPIN [Concomitant]
     Dosage: 1 MG, UNK
  5. FLEXERIL                           /00428402/ [Concomitant]
     Dosage: 10 MG, UNK
  6. TALACEN [Concomitant]
     Dosage: UNK
  7. LEUCOVORIN CA [Concomitant]
     Dosage: 10 MG, UNK
  8. METHOTREXATE [Concomitant]
     Dosage: 2.5 MG, UNK
  9. ALBUTEROL                          /00139501/ [Concomitant]
     Dosage: 90 MUG, UNK
  10. VITAMIN C                          /00008001/ [Concomitant]
     Dosage: 500 MG, UNK
  11. NEXIUM                             /01479302/ [Concomitant]
     Dosage: 20 MG, UNK
  12. CEREFOLIN NAC [Concomitant]
     Dosage: UNK
  13. ATROVENT HFA [Concomitant]
     Dosage: 17 MUG, UNK
  14. LOFIBRA                            /00465701/ [Concomitant]
     Dosage: 54 MG, UNK

REACTIONS (1)
  - Injection site reaction [Unknown]
